FAERS Safety Report 11921461 (Version 2)
Quarter: 2016Q1

REPORT INFORMATION
  Report Type: Spontaneous
  Country: CZ (occurrence: CZ)
  Receive Date: 20160115
  Receipt Date: 20160122
  Transmission Date: 20160526
  Serious: Yes (Life-Threatening, Other)
  Sender: FDA-Public Use
  Company Number: CZ-BAYER-2016-006199

PATIENT
  Age: 34 Year
  Sex: Female

DRUGS (1)
  1. JAYDESS [Suspect]
     Active Substance: LEVONORGESTREL
     Indication: CONTRACEPTION
     Dosage: 14 MCG/24HR, CONT
     Route: 015
     Dates: start: 20140925

REACTIONS (4)
  - Drug ineffective [None]
  - Peritoneal haemorrhage [None]
  - Ectopic pregnancy with contraceptive device [None]
  - Abdominal pain lower [None]

NARRATIVE: CASE EVENT DATE: 2015
